FAERS Safety Report 7482598-2 (Version None)
Quarter: 2011Q2

REPORT INFORMATION
  Report Type: 
  Country: None (occurrence: None)
  Receive Date: 20110516
  Receipt Date: 20110506
  Transmission Date: 20111010
  Serious: Yes (Hospitalization, Other)
  Sender: FDA-Public Use
  Company Number: US-ASTRAZENECA-2010SE48082

PATIENT
  Age: 76 Year
  Sex: Female

DRUGS (1)
  1. ATACAND [Suspect]
     Route: 048

REACTIONS (4)
  - SURGERY [None]
  - NEOPLASM MALIGNANT [None]
  - CHEMOTHERAPY [None]
  - IMPLANTABLE DEFIBRILLATOR INSERTION [None]
